FAERS Safety Report 17574952 (Version 2)
Quarter: 2020Q1

REPORT INFORMATION
  Report Type: Spontaneous
  Country: SE (occurrence: SE)
  Receive Date: 20200324
  Receipt Date: 20200326
  Transmission Date: 20200409
  Serious: Yes (Other)
  Sender: FDA-Public Use
  Company Number: SE-TEVA-2020-SE-1206795

PATIENT
  Age: 75 Year
  Sex: Female

DRUGS (1)
  1. ATORVASTATIN [Suspect]
     Active Substance: ATORVASTATIN
     Indication: HYPERCHOLESTEROLAEMIA
     Dosage: 80 MG 1 DAYS
     Route: 048
     Dates: start: 20190528, end: 20190531

REACTIONS (2)
  - Lichen planopilaris [Not Recovered/Not Resolved]
  - Lichen planus [Recovering/Resolving]

NARRATIVE: CASE EVENT DATE: 20190628
